FAERS Safety Report 18605597 (Version 1)
Quarter: 2020Q4

REPORT INFORMATION
  Report Type: Spontaneous
  Country: DE (occurrence: DE)
  Receive Date: 20201211
  Receipt Date: 20201211
  Transmission Date: 20210114
  Serious: Yes (Other)
  Sender: FDA-Public Use
  Company Number: DE-MYLANLABS-2020M1100193

PATIENT

DRUGS (15)
  1. METHOTREXATE. [Suspect]
     Active Substance: METHOTREXATE
     Indication: PRODUCT USED FOR UNKNOWN INDICATION
     Dosage: 2.5 MILLIGRAM (CYCLE 4+6; 1 CYCLE = 3 WEEKS; DAYS 3-5) WITH PREDNISOLONE
  2. SULFAMETHOXAZOLE AND TRIMETHOPRIM [Suspect]
     Active Substance: SULFAMETHOXAZOLE\TRIMETHOPRIM
     Indication: PRODUCT USED FOR UNKNOWN INDICATION
     Dosage: UNK, AT EACH CYCLE
  3. ACICLOVIR [Suspect]
     Active Substance: ACYCLOVIR
     Indication: PRODUCT USED FOR UNKNOWN INDICATION
     Dosage: UNK, AT EACH CYCLE
  4. IFOSFAMIDE. [Suspect]
     Active Substance: IFOSFAMIDE
     Indication: PRODUCT USED FOR UNKNOWN INDICATION
     Dosage: 800 MG/M2 (CYCLE 1-3; 1 CYCLE = 2 WEEKS; DAYS 2-4)
     Route: 042
  5. GRANULOCYTE COLONY STIMULATING FACTOR [Suspect]
     Active Substance: GRANULOCYTE COLONY-STIMULATING FACTOR NOS
     Indication: PROPHYLAXIS
     Dosage: UNK, AT EACH CYCLE
  6. ARA-C [Suspect]
     Active Substance: CYTARABINE
     Dosage: 10 MG INTRAVENTRICULAR (CYCLE 4+6; 1 CYCLE = 3 WEEKS; DAY 6)
  7. ARA-C [Suspect]
     Active Substance: CYTARABINE
     Indication: CENTRAL NERVOUS SYSTEM LYMPHOMA
     Dosage: 3000 MG/M2 (CYCLE 4+6; 1 CYCLE = 3 WEEKS; DAYS 1-2)
     Route: 042
  8. METHOTREXATE. [Suspect]
     Active Substance: METHOTREXATE
     Indication: PRODUCT USED FOR UNKNOWN INDICATION
     Dosage: 4000 MG/M2 (CYCLE 1-3; 1 CYCLE = 2 WEEKS; DAY 1)
     Route: 042
  9. IFOSFAMIDE. [Suspect]
     Active Substance: IFOSFAMIDE
     Dosage: 800 MG/M2 (CYCLE 5; 1 CYCLE = 2 WEEKS; DAYS 2-4)
     Route: 042
  10. METHOTREXATE. [Suspect]
     Active Substance: METHOTREXATE
     Dosage: 2,5 MG (CYCLE 5; 1 CYCLE = 2 WEEKS; DAYS 2-4) WITH PREDNISOLONE
  11. PREDNISOLONE. [Suspect]
     Active Substance: PREDNISOLONE
     Indication: CENTRAL NERVOUS SYSTEM LYMPHOMA
     Dosage: 3 MG ICV (CYCLE 4+6; 1 CYCLE = 3 WEEKS; DAYS 3-5) WITH MTX
  12. RITUXIMAB. [Suspect]
     Active Substance: RITUXIMAB
     Indication: CENTRAL NERVOUS SYSTEM LYMPHOMA
     Dosage: 375 MG/M2 (CYCLE 1-3; 1 CYCLE = 2 WEEKS; DAY 0)
     Route: 042
  13. METHOTREXATE. [Suspect]
     Active Substance: METHOTREXATE
     Dosage: 4000 MG/M2 (CYCLE 5; 1 CYCLE = 2 WEEKS; DAY 1)
     Route: 042
  14. PREDNISOLONE. [Suspect]
     Active Substance: PREDNISOLONE
     Dosage: 3 MG ICV (CYCLE 5; 1 CYCLE = 2 WEEKS; DAYS 2-4) WITH MTX
  15. ARA-C [Suspect]
     Active Substance: CYTARABINE
     Indication: PRODUCT USED FOR UNKNOWN INDICATION
     Dosage: 10 MG INTRAVENTRICULAR (CYCLE 5; 1 CYCLE = 2 WEEKS; DAY 5)

REACTIONS (1)
  - Escherichia infection [Unknown]
